FAERS Safety Report 9454413 (Version 1)
Quarter: 2013Q3

REPORT INFORMATION
  Report Type: Spontaneous
  Country: CN (occurrence: CN)
  Receive Date: 20130812
  Receipt Date: 20130812
  Transmission Date: 20140515
  Serious: Yes (Death, Life-Threatening, Other)
  Sender: FDA-Public Use
  Company Number: CN-ROXANE LABORATORIES, INC.-2013-RO-01323RO

PATIENT
  Age: 58 Year
  Sex: Female

DRUGS (8)
  1. DEXAMETHASONE [Suspect]
     Indication: PLASMA CELL MYELOMA
  2. PREDNISONE [Suspect]
     Indication: PLASMA CELL MYELOMA
  3. CYCLOPHOSPHAMIDE TABLETS USP [Suspect]
     Indication: PLASMA CELL MYELOMA
  4. CARMUSTINE [Suspect]
     Indication: PLASMA CELL MYELOMA
  5. CHLORAMBUCIL [Suspect]
     Indication: PLASMA CELL MYELOMA
  6. VINCRISTINE [Suspect]
     Indication: PLASMA CELL MYELOMA
  7. ADRIAMYCIN [Suspect]
     Indication: PLASMA CELL MYELOMA
  8. THALIDOMIDE [Suspect]
     Indication: PLASMA CELL MYELOMA

REACTIONS (3)
  - Listeria sepsis [Fatal]
  - Coma [Unknown]
  - Diabetes mellitus [Unknown]
